FAERS Safety Report 8155507-0 (Version None)
Quarter: 2012Q1

REPORT INFORMATION
  Report Type: 
  Country: None (occurrence: None)
  Receive Date: 20120215
  Receipt Date: 20120208
  Transmission Date: 20120608
  Serious: Yes (Death, Hospitalization)
  Sender: FDA-Public Use
  Company Number: ACO_29286_2012

PATIENT
  Age: 48 Year
  Sex: Male

DRUGS (14)
  1. HYOSCINE HBR HYT [Concomitant]
  2. INDERAL [Concomitant]
  3. MOVICOL /01625101/ (MACROGOL, POTASSIUM CHLORIDE, SODIUM BICARBONATE) [Concomitant]
  4. SURMONTIL /00051801/ (TRIMIPRAMINE) [Concomitant]
  5. MAGNESIOCARD (MAGNESIUM ASPARTATE HYDROCHLORIDE) [Concomitant]
  6. PANTOZOL /01263204/ (PANTOPRAZOLE SODIUM SESQUIHYDRATE) [Concomitant]
  7. MOTILIUM /00498201/ (DOMPERIDONE) [Concomitant]
  8. TARGIN (NALOXONE HYDROCHLORIDE, OXYCODONE HYDROCHLORIDE) [Concomitant]
  9. REMERON [Concomitant]
  10. TEMESTA /00273201/ (LORAZEPAM) [Concomitant]
  11. ATORVASTATIN CALCIUM [Concomitant]
  12. TIZANIDINE HYDROCHLORIDE [Suspect]
     Indication: MUSCLE SPASMS
  13. GILENYA [Suspect]
     Indication: MULTIPLE SCLEROSIS
     Dosage: UNK, ORAL
     Route: 048
     Dates: start: 20110427
  14. CLOZAPINE [Suspect]
     Indication: PRODUCT USED FOR UNKNOWN INDICATION

REACTIONS (6)
  - PAIN [None]
  - DEPRESSION [None]
  - FEELING OF DESPAIR [None]
  - FEAR [None]
  - MULTIPLE SCLEROSIS RELAPSE [None]
  - COMPLETED SUICIDE [None]
